FAERS Safety Report 4387977-8 (Version None)
Quarter: 2004Q2

REPORT INFORMATION
  Report Type: 
  Country: None (occurrence: None)
  Receive Date: 20040607
  Receipt Date: 20030409
  Transmission Date: 20050107
  Serious: No
  Sender: FDA-Public Use
  Company Number: 334873

PATIENT
  Age: 34 Year
  Sex: Male
  Weight: 83.9 kg

DRUGS (3)
  1. ACCUTANE [Suspect]
     Indication: DRUG USE FOR UNKNOWN INDICATION
     Dosage: ORAL
     Route: 048
     Dates: end: 20030327
  2. APRAZOLAM [Concomitant]
  3. TEMAZEPAM [Concomitant]

REACTIONS (1)
  - DEPRESSION [None]
